FAERS Safety Report 17212308 (Version 1)
Quarter: 2019Q4

REPORT INFORMATION
  Report Type: Spontaneous
  Country: US (occurrence: US)
  Receive Date: 20191230
  Receipt Date: 20191230
  Transmission Date: 20200122
  Serious: No
  Sender: FDA-Public Use
  Company Number: US-ORIENT PHARMA-000013

PATIENT
  Sex: Male

DRUGS (1)
  1. CARISOPRODOL ORIENT [Suspect]
     Active Substance: CARISOPRODOL
     Indication: BACK PAIN
     Dosage: STRENGTH: 350 MG
     Route: 048

REACTIONS (3)
  - Incorrect product administration duration [Unknown]
  - Drug ineffective [Unknown]
  - Headache [Unknown]
